FAERS Safety Report 24712940 (Version 1)
Quarter: 2024Q4

REPORT INFORMATION
  Report Type: Spontaneous
  Country: IT (occurrence: IT)
  Receive Date: 20241209
  Receipt Date: 20241209
  Transmission Date: 20250115
  Serious: Yes (Hospitalization)
  Sender: TEVA
  Company Number: None

PATIENT
  Age: 1 Year
  Sex: Male
  Weight: 10 kg

DRUGS (3)
  1. AMOXICILLIN\CLAVULANIC ACID [Suspect]
     Active Substance: AMOXICILLIN\CLAVULANIC ACID
     Indication: Product used for unknown indication
     Dosage: 250 MG X 3 VV/DAY: AMOXICILLIN CLAVULANIC ACID TEVA
     Route: 042
     Dates: start: 20240908, end: 20240918
  2. IBUPROFEN [Suspect]
     Active Substance: IBUPROFEN
     Indication: Product used for unknown indication
     Route: 048
     Dates: start: 20240913, end: 20240915
  3. CEFTAZIDIME [Suspect]
     Active Substance: CEFTAZIDIME
     Indication: Product used for unknown indication
     Dosage: 300 MG X 3 VV/DAY
     Route: 042
     Dates: start: 20240904, end: 20240908

REACTIONS (1)
  - Drug reaction with eosinophilia and systemic symptoms [Recovered/Resolved]

NARRATIVE: CASE EVENT DATE: 20240915
